FAERS Safety Report 5407104-5 (Version None)
Quarter: 2007Q3

REPORT INFORMATION
  Report Type: 
  Country: None (occurrence: None)
  Receive Date: 20070802
  Receipt Date: 20070529
  Transmission Date: 20080115
  Serious: Yes (Other)
  Sender: FDA-Public Use
  Company Number: 001#1#2007-00380

PATIENT

DRUGS (1)
  1. NEUPRO-PATCH-DOSE-UNKNOWN (ROTIGOTINE) [Suspect]
     Dosage: TRANSDERMAL
     Route: 062

REACTIONS (1)
  - CARDIAC VALVE DISEASE [None]
